FAERS Safety Report 6442290-X (Version None)
Quarter: 2009Q4

REPORT INFORMATION
  Report Type: 
  Country: None (occurrence: None)
  Receive Date: 20091112
  Receipt Date: 20090925
  Transmission Date: 20100525
  Serious: Yes (Hospitalization)
  Sender: FDA-Public Use
  Company Number: WAES 0909USA04057

PATIENT
  Age: 53 Year
  Sex: Male

DRUGS (12)
  1. TAB LANOPIPRANT (+) NIACIN UNK [Suspect]
     Indication: HIGH DENSITY LIPOPROTEIN DECREASED
     Dosage: PO
     Route: 048
     Dates: start: 20071022, end: 20080712
  2. VYTORIN [Suspect]
     Indication: HYPERCHOLESTEROLAEMIA
     Dosage: 10-40MG, DAILY, PO
     Route: 048
     Dates: start: 20070727, end: 20080712
  3. TAB LAROPIPRANT (+) NIACIN 20MG-1GM, 20MG-2GM [Suspect]
     Indication: HIGH DENSITY LIPOPROTEIN DECREASED
     Dosage: 20MG-1GM, DAILY, PO; 20MG-2GM, DAILY, PO
     Route: 048
     Dates: end: 20071021
  4. TAB LAROPIPRANT (+) NIACIN 20MG-1GM, 20MG-2GM [Suspect]
     Indication: HIGH DENSITY LIPOPROTEIN DECREASED
     Dosage: 20MG-1GM, DAILY, PO; 20MG-2GM, DAILY, PO
     Route: 048
     Dates: start: 20070827
  5. ZOCOR [Suspect]
     Indication: HYPERCHOLESTEROLAEMIA
     Dosage: 40MG, DAILY, PO
     Route: 048
     Dates: start: 20070629, end: 20070726
  6. ASPIRIN [Concomitant]
  7. GLIPIZIDE [Concomitant]
  8. ISOSORBIDE MONONITRATE [Concomitant]
  9. METFORMIN HCL [Concomitant]
  10. METOPROLOL [Concomitant]
  11. ROSIGLITAZONE MALEATE [Concomitant]
  12. VALSARTAN [Concomitant]

REACTIONS (3)
  - CIRRHOSIS ALCOHOLIC [None]
  - GASTROINTESTINAL HAEMORRHAGE [None]
  - STRESS ULCER [None]
